FAERS Safety Report 20738056 (Version 2)
Quarter: 2022Q2

REPORT INFORMATION
  Report Type: Report from Study
  Country: FR (occurrence: FR)
  Receive Date: 20220422
  Receipt Date: 20220509
  Transmission Date: 20220721
  Serious: Yes (Hospitalization, Other)
  Sender: FDA-Public Use
  Company Number: FR-BRISTOL-MYERS SQUIBB COMPANY-2022-022185

PATIENT
  Age: 90 Year
  Sex: Male

DRUGS (2)
  1. NIVOLUMAB [Suspect]
     Active Substance: NIVOLUMAB
     Indication: Renal cancer
     Route: 041
     Dates: start: 20220124
  2. IPILIMUMAB [Suspect]
     Active Substance: IPILIMUMAB
     Indication: Renal cancer
     Route: 041
     Dates: start: 20220124

REACTIONS (8)
  - Anaemia [Recovering/Resolving]
  - Diarrhoea [Recovering/Resolving]
  - General physical health deterioration [Recovering/Resolving]
  - Colitis [Unknown]
  - Acute kidney injury [Unknown]
  - Blood creatinine increased [Not Recovered/Not Resolved]
  - Diabetic hyperosmolar coma [Recovered/Resolved]
  - Pneumonia aspiration [Recovering/Resolving]

NARRATIVE: CASE EVENT DATE: 20220325
